FAERS Safety Report 5089715-2 (Version None)
Quarter: 2006Q3

REPORT INFORMATION
  Report Type: 
  Country: None (occurrence: None)
  Receive Date: 20060731
  Receipt Date: 20060516
  Transmission Date: 20061208
  Serious: Yes (Hospitalization, Other)
  Sender: FDA-Public Use
  Company Number: US200605003446

PATIENT
  Age: 84 Year
  Sex: Female

DRUGS (6)
  1. FORTEO [Suspect]
     Indication: OSTEOPOROSIS
     Dates: start: 20050501, end: 20051228
  2. FORTEO [Concomitant]
  3. LABETALOL HCL [Concomitant]
  4. METHYLDOPA [Concomitant]
  5. VERAPAMIL [Concomitant]
  6. ASA (ASPIRIN (ACETYLSALICYLIC ACID) [Concomitant]

REACTIONS (1)
  - HYPERTENSION [None]
